FAERS Safety Report 9078440 (Version 1)
Quarter: 2013Q1

REPORT INFORMATION
  Report Type: Spontaneous
  Country: US (occurrence: US)
  Receive Date: 20130215
  Receipt Date: 20130215
  Transmission Date: 20140127
  Serious: No
  Sender: FDA-Public Use
  Company Number: US-009507513-1302USA003232

PATIENT
  Age: 15 Year
  Sex: Female
  Weight: 68.27 kg

DRUGS (2)
  1. NEXPLANON [Suspect]
     Indication: CONTRACEPTION
     Dosage: 3 YEAR IMPLANT
     Route: 059
     Dates: start: 20130206
  2. NEXPLANON [Suspect]
     Dosage: 3 YEAR IMPLANT
     Route: 059
     Dates: start: 20130206

REACTIONS (3)
  - Device difficult to use [Unknown]
  - Medical device complication [Unknown]
  - No adverse event [Unknown]
